FAERS Safety Report 5281307-5 (Version None)
Quarter: 2007Q1

REPORT INFORMATION
  Report Type: 
  Country: None (occurrence: None)
  Receive Date: 20061221
  Receipt Date: 20061005
  Transmission Date: 20070707
  Serious: Yes (Other)
  Sender: FDA-Public Use
  Company Number: PHEH2006US10830

PATIENT
  Age: 7 Year
  Sex: Male

DRUGS (2)
  1. FOCALIN XR [Suspect]
     Indication: ATTENTION DEFICIT/HYPERACTIVITY DISORDER
     Dosage: 5 MG, QD, ORAL
     Route: 048
     Dates: start: 20051101
  2. SINGULAIR [Suspect]

REACTIONS (4)
  - DEPRESSED MOOD [None]
  - EATING DISORDER [None]
  - HEART RATE INCREASED [None]
  - INSOMNIA [None]
